FAERS Safety Report 23257681 (Version 1)
Quarter: 2023Q4

REPORT INFORMATION
  Report Type: Spontaneous
  Country: NP (occurrence: NP)
  Receive Date: 20231204
  Receipt Date: 20231204
  Transmission Date: 20240110
  Serious: Yes (Other)
  Sender: FDA-Public Use
  Company Number: NP-BRISTOL-MYERS SQUIBB COMPANY-2023-170428

PATIENT
  Age: 44 Year
  Sex: Female

DRUGS (1)
  1. SPRYCEL [Suspect]
     Active Substance: DASATINIB
     Indication: Chronic myeloid leukaemia
     Dosage: 50MG X 2 TABLETS

REACTIONS (2)
  - Cardiotoxicity [Unknown]
  - Cardiac failure [Unknown]
